FAERS Safety Report 4412996-2 (Version None)
Quarter: 2004Q3

REPORT INFORMATION
  Report Type: 
  Country: None (occurrence: None)
  Receive Date: 20040802
  Receipt Date: 20040406
  Transmission Date: 20050211
  Serious: No
  Sender: FDA-Public Use
  Company Number: US-GLAXOSMITHKLINE-A0505994A

PATIENT
  Sex: Male

DRUGS (2)
  1. ZANTAC [Suspect]
     Dosage: 2ML TWICE PER DAY
     Route: 048
     Dates: start: 20040402
  2. NO CONCURRENT MEDICATION [Concomitant]

REACTIONS (2)
  - AGITATION [None]
  - DRUG INEFFECTIVE [None]
